FAERS Safety Report 13042079 (Version 1)
Quarter: 2016Q4

REPORT INFORMATION
  Report Type: Spontaneous
  Country: US (occurrence: US)
  Receive Date: 20161219
  Receipt Date: 20161219
  Transmission Date: 20170207
  Serious: No
  Sender: FDA-Public Use
  Company Number: US-PFIZER INC-2016586931

PATIENT

DRUGS (6)
  1. CHILDRENS DIMETAPP COLD AND FEVER (IBUPROFEN\PSEUDOEPHEDRINE HYDROCHLORIDE) [Suspect]
     Active Substance: IBUPROFEN\PSEUDOEPHEDRINE HYDROCHLORIDE
     Indication: EYE PRURITUS
  2. CHILDRENS DIMETAPP COLD AND FEVER (IBUPROFEN\PSEUDOEPHEDRINE HYDROCHLORIDE) [Suspect]
     Active Substance: IBUPROFEN\PSEUDOEPHEDRINE HYDROCHLORIDE
     Indication: PAIN
  3. CHILDRENS DIMETAPP COLD AND FEVER (IBUPROFEN\PSEUDOEPHEDRINE HYDROCHLORIDE) [Suspect]
     Active Substance: IBUPROFEN\PSEUDOEPHEDRINE HYDROCHLORIDE
     Indication: PYREXIA
  4. CHILDRENS DIMETAPP COLD AND FEVER (IBUPROFEN\PSEUDOEPHEDRINE HYDROCHLORIDE) [Suspect]
     Active Substance: IBUPROFEN\PSEUDOEPHEDRINE HYDROCHLORIDE
     Indication: NASOPHARYNGITIS
  5. CHILDRENS DIMETAPP COLD AND FEVER (IBUPROFEN\PSEUDOEPHEDRINE HYDROCHLORIDE) [Suspect]
     Active Substance: IBUPROFEN\PSEUDOEPHEDRINE HYDROCHLORIDE
     Indication: LACRIMATION INCREASED
  6. CHILDRENS DIMETAPP COLD AND FEVER (IBUPROFEN\PSEUDOEPHEDRINE HYDROCHLORIDE) [Suspect]
     Active Substance: IBUPROFEN\PSEUDOEPHEDRINE HYDROCHLORIDE
     Indication: COUGH
     Dosage: UNK

REACTIONS (1)
  - Drug ineffective [Unknown]
